FAERS Safety Report 6369082-4 (Version None)
Quarter: 2009Q3

REPORT INFORMATION
  Report Type: 
  Country: None (occurrence: None)
  Receive Date: 20090922
  Receipt Date: 20090917
  Transmission Date: 20100115
  Serious: Yes (Death)
  Sender: FDA-Public Use
  Company Number: PHHY2009BR40142

PATIENT
  Sex: Female

DRUGS (2)
  1. DIOVAN [Suspect]
     Indication: HYPERTENSION
     Dosage: 1 DF DAILY
  2. FUROSEMIDE [Concomitant]
     Indication: DIURETIC THERAPY

REACTIONS (1)
  - CEREBROVASCULAR ACCIDENT [None]
